FAERS Safety Report 13386346 (Version 2)
Quarter: 2017Q2

REPORT INFORMATION
  Report Type: Report from Study
  Country: US (occurrence: US)
  Receive Date: 20170330
  Receipt Date: 20170428
  Transmission Date: 20170830
  Serious: No
  Sender: FDA-Public Use
  Company Number: PHEH2017US009115

PATIENT
  Age: 76 Year
  Sex: Female

DRUGS (1)
  1. GLEEVEC [Suspect]
     Active Substance: IMATINIB MESYLATE
     Indication: PRODUCT USED FOR UNKNOWN INDICATION
     Dosage: 400 MG, BID
     Route: 048
     Dates: start: 20170310

REACTIONS (4)
  - Renal function test abnormal [Unknown]
  - Urticaria [Not Recovered/Not Resolved]
  - Rash [Unknown]
  - Flatulence [Unknown]

NARRATIVE: CASE EVENT DATE: 20170410
